FAERS Safety Report 9372045 (Version 1)
Quarter: 2013Q2

REPORT INFORMATION
  Report Type: Report from Study
  Country: US (occurrence: US)
  Receive Date: 20130627
  Receipt Date: 20130627
  Transmission Date: 20140414
  Serious: Yes (Other)
  Sender: FDA-Public Use
  Company Number: US-MYLANLABS-2012S1013505

PATIENT
  Age: 41 Year
  Sex: Male

DRUGS (8)
  1. CLOZAPINE TABLETS [Suspect]
     Route: 048
     Dates: start: 200908, end: 20121004
  2. AMITIZA [Concomitant]
  3. OMEPRAZOLE [Concomitant]
  4. CLONIDINE [Concomitant]
  5. FLUPHENAZINE [Concomitant]
  6. SIMVASTATIN [Concomitant]
  7. BENZOTROPINE [Concomitant]
  8. CLOMIPRAMINE [Concomitant]

REACTIONS (1)
  - Granulocytopenia [Not Recovered/Not Resolved]
